FAERS Safety Report 23415875 (Version 1)
Quarter: 2024Q1

REPORT INFORMATION
  Report Type: Spontaneous
  Country: US (occurrence: None)
  Receive Date: 20240117
  Receipt Date: 20240117
  Transmission Date: 20240410
  Serious: No
  Sender: FDA-Public Use
  Company Number: None

PATIENT
  Age: 48 Year
  Sex: Female

DRUGS (2)
  1. AMBRISENTAN [Suspect]
     Active Substance: AMBRISENTAN
  2. DEVICE [Suspect]
     Active Substance: DEVICE

REACTIONS (3)
  - Vascular device infection [None]
  - Device related sepsis [None]
  - Therapy interrupted [None]
